FAERS Safety Report 7086451-8 (Version None)
Quarter: 2010Q4

REPORT INFORMATION
  Report Type: 
  Country: None (occurrence: None)
  Receive Date: 20101105
  Receipt Date: 20101104
  Transmission Date: 20110411
  Serious: Yes (Disabling, Other)
  Sender: FDA-Public Use
  Company Number: DE-SANOFI-AVENTIS-2010SA057383

PATIENT
  Age: 58 Year
  Sex: Female
  Weight: 52 kg

DRUGS (2)
  1. TAXOTERE [Suspect]
     Indication: BREAST CANCER
     Route: 041
     Dates: start: 20100810, end: 20100810
  2. TAXOTERE [Suspect]
     Route: 041
     Dates: start: 20100921, end: 20100921

REACTIONS (9)
  - BONE PAIN [None]
  - DEPRESSION [None]
  - DIZZINESS [None]
  - GAIT DISTURBANCE [None]
  - MYALGIA [None]
  - NAUSEA [None]
  - NEURITIS [None]
  - OEDEMA PERIPHERAL [None]
  - PARAPARESIS [None]
